FAERS Safety Report 7733688-8 (Version None)
Quarter: 2011Q3

REPORT INFORMATION
  Report Type: 
  Country: None (occurrence: None)
  Receive Date: 20110907
  Receipt Date: 20110829
  Transmission Date: 20111222
  Serious: Yes (Disabling)
  Sender: FDA-Public Use
  Company Number: JP-BRISTOL-MYERS SQUIBB COMPANY-16027344

PATIENT
  Age: 55 Year
  Sex: Male

DRUGS (4)
  1. REYATAZ [Suspect]
     Indication: HIV INFECTION
     Route: 048
     Dates: start: 20091026
  2. EPZICOM [Suspect]
     Indication: HIV INFECTION
     Dosage: 1 DF = 1 TAB
     Route: 048
     Dates: start: 20091026
  3. NORVIR [Suspect]
     Indication: HIV INFECTION
     Route: 048
     Dates: start: 20091026
  4. BEZATOL SR [Concomitant]
     Indication: HYPERLIPIDAEMIA
     Dates: start: 20100401

REACTIONS (2)
  - EPILEPSY [None]
  - TRANSIENT ISCHAEMIC ATTACK [None]
